FAERS Safety Report 10169693 (Version 2)
Quarter: 2014Q2

REPORT INFORMATION
  Report Type: Spontaneous
  Country: JP (occurrence: JP)
  Receive Date: 20140513
  Receipt Date: 20140521
  Transmission Date: 20141212
  Serious: Yes (Other)
  Sender: FDA-Public Use
  Company Number: JP-PFIZER INC-2014129831

PATIENT
  Age: 73 Year
  Sex: Male

DRUGS (3)
  1. LYRICA [Suspect]
     Indication: POST HERPETIC NEURALGIA
     Dosage: 300 MG, DAILY
     Route: 048
     Dates: start: 201312, end: 20140127
  2. LYRICA [Suspect]
     Dosage: 450 MG, DAILY
     Route: 048
     Dates: start: 20140128, end: 20140429
  3. LYRICA [Suspect]
     Dosage: 300 MG, DAILY
     Dates: start: 20140430

REACTIONS (3)
  - Transient ischaemic attack [Recovered/Resolved]
  - Altered state of consciousness [Recovered/Resolved]
  - Drug ineffective [Unknown]
